FAERS Safety Report 8106131 (Version 3)
Quarter: 2013Q4

REPORT INFORMATION
  Report Type: Spontaneous
  Country: US (occurrence: US)
  Receive Date: 20110825
  Receipt Date: 20131127
  Transmission Date: 20140711
  Serious: Yes (Hospitalization, Other)
  Sender: FDA-Public Use
  Company Number: US-BAYER-2011-075367

PATIENT
  Age: 17 Year
  Sex: Female
  Weight: 47.17 kg

DRUGS (3)
  1. YAZ [Suspect]
     Indication: CONTRACEPTION
     Dosage: UNK
     Dates: start: 200712, end: 2009
  2. PEPCID [Concomitant]
  3. TYLENOL EXTRA STRENGTH [Concomitant]

REACTIONS (2)
  - Gallbladder injury [None]
  - Biliary dyskinesia [None]
